FAERS Safety Report 7509571-X (Version None)
Quarter: 2011Q2

REPORT INFORMATION
  Report Type: 
  Country: None (occurrence: None)
  Receive Date: 20110527
  Receipt Date: 20110519
  Transmission Date: 20111010
  Serious: Yes (Other)
  Sender: FDA-Public Use
  Company Number: PHHY2011GB44409

PATIENT
  Age: 48 Year
  Sex: Male

DRUGS (4)
  1. ROSIGLITAZONE [Suspect]
  2. ATORVASTATIN [Suspect]
     Dosage: 80 MG, UNK
  3. METFORMIN HCL [Suspect]
  4. FENOFIBRATE [Suspect]
     Dosage: 200 MG

REACTIONS (2)
  - HIGH DENSITY LIPOPROTEIN DECREASED [None]
  - HYPOLIPIDAEMIA [None]
